FAERS Safety Report 6283635-3 (Version None)
Quarter: 2009Q3

REPORT INFORMATION
  Report Type: 
  Country: None (occurrence: None)
  Receive Date: 20090724
  Receipt Date: 20090720
  Transmission Date: 20100115
  Serious: Yes (Death, Hospitalization)
  Sender: FDA-Public Use
  Company Number: PHHY2009IT24574

PATIENT
  Sex: Male

DRUGS (14)
  1. SANDIMMUNE [Suspect]
     Dosage: 150 MG/DAY
     Route: 048
     Dates: start: 20081202, end: 20090227
  2. SINVACOR [Suspect]
     Indication: HYPERCHOLESTEROLAEMIA
     Dosage: 40 MG/DAY
     Route: 048
     Dates: start: 20081202, end: 20090227
  3. ESAPENT [Concomitant]
     Dosage: 1000 MG, UNK
     Route: 048
     Dates: start: 20051015, end: 20090226
  4. ZYLORIC [Concomitant]
     Dosage: 150 MG, UNK
     Route: 048
     Dates: start: 20080430, end: 20090226
  5. TORADIUR [Concomitant]
     Dosage: 10 MG, UNK
     Route: 048
     Dates: start: 20070821, end: 20090226
  6. TORADIUR [Concomitant]
     Dosage: 20 MG, UNK
     Dates: start: 20051015, end: 20090226
  7. LASIX [Concomitant]
     Dosage: 250 MG, UNK
     Route: 048
     Dates: start: 20060608, end: 20090226
  8. KARVEA [Concomitant]
     Dosage: 300 MG, UNK
     Route: 048
     Dates: start: 20051112, end: 20090226
  9. COUMADIN [Concomitant]
     Dosage: UNK
     Route: 048
     Dates: start: 20051112, end: 20090226
  10. TRIATEC [Concomitant]
     Dosage: 10 MG, UNK
     Route: 048
     Dates: start: 20051112, end: 20090226
  11. SPIRIVA [Concomitant]
     Dosage: 1 POSOLOGIC UNIT
     Route: 048
     Dates: start: 20060720, end: 20090226
  12. PRONTINAL [Concomitant]
     Dosage: 4 ML
     Dates: start: 20060825, end: 20090226
  13. DUOVENT [Concomitant]
     Dosage: UNK
     Dates: start: 20060825, end: 20090226
  14. MEPRAL [Concomitant]
     Dosage: 20 MG
     Route: 048
     Dates: start: 20051015, end: 20090226

REACTIONS (7)
  - ANURIA [None]
  - ASTHENIA [None]
  - HAEMODIALYSIS [None]
  - HYPERKALAEMIA [None]
  - MYALGIA [None]
  - OLIGURIA [None]
  - RENAL FAILURE ACUTE [None]
